FAERS Safety Report 20034697 (Version 1)
Quarter: 2021Q4

REPORT INFORMATION
  Report Type: Spontaneous
  Country: DE (occurrence: DE)
  Receive Date: 20211104
  Receipt Date: 20211104
  Transmission Date: 20220303
  Serious: Yes (Hospitalization, Other)
  Sender: FDA-Public Use
  Company Number: DE-ADRED-07013-01

PATIENT
  Age: 76 Year
  Sex: Female

DRUGS (14)
  1. ASPIRIN [Suspect]
     Active Substance: ASPIRIN
     Indication: Product used for unknown indication
     Dosage: 100 MG, 1-0-0-0
  2. DOXORUBICIN [Suspect]
     Active Substance: DOXORUBICIN
     Indication: Product used for unknown indication
     Dosage: DEMAND
  3. DEXAMETHASONE [Suspect]
     Active Substance: DEXAMETHASONE
     Indication: Product used for unknown indication
     Dosage: 4 MG, DEMAND
  4. CARBOPLATIN [Suspect]
     Active Substance: CARBOPLATIN
     Indication: Product used for unknown indication
     Dosage: DEMAND
  5. PREDNISOLON                        /00016201/ [Concomitant]
     Dosage: 5 MG, 1-0-0-0
  6. ATORVASTATIN [Concomitant]
     Active Substance: ATORVASTATIN
     Dosage: 40 MG, 0-0-1-0
  7. FLUCONAZOLE [Concomitant]
     Active Substance: FLUCONAZOLE
     Dosage: 200 MG,DEMAND
  8. GRANISETRON [Concomitant]
     Active Substance: GRANISETRON
     Dosage: 2 MG, DEMAND
  9. LEVOTHYROXINE SODIUM [Concomitant]
     Active Substance: LEVOTHYROXINE SODIUM
     Dosage: 75 ?G, 1-0-0-0
  10. CANDESARTAN [Concomitant]
     Active Substance: CANDESARTAN
     Dosage: 8 MG, 1-0-0-0
  11. METOCLOPRAMID                      /00041901/ [Concomitant]
     Dosage: DEMAND
  12. CIPROFLOXACIN [Concomitant]
     Active Substance: CIPROFLOXACIN
     Dosage: 250 MG,DEMAND
  13. ACYCLOVIR [Concomitant]
     Active Substance: ACYCLOVIR
     Dosage: DEMAND
  14. METAMIZOL                          /06276701/ [Concomitant]
     Dosage: DEMAND

REACTIONS (6)
  - Abdominal distension [Unknown]
  - Tachypnoea [Unknown]
  - Nausea [Unknown]
  - Vomiting [Unknown]
  - General physical health deterioration [Unknown]
  - Haematochezia [Unknown]
